FAERS Safety Report 13242349 (Version 1)
Quarter: 2017Q1

REPORT INFORMATION
  Report Type: Spontaneous
  Country: US (occurrence: US)
  Receive Date: 20170216
  Receipt Date: 20170216
  Transmission Date: 20170428
  Serious: No
  Sender: FDA-Public Use
  Company Number: US-MISSION PHARMACAL COMPANY-1063208

PATIENT
  Age: 19 Year
  Sex: Female

DRUGS (3)
  1. BENADRYL [Concomitant]
     Active Substance: DIPHENHYDRAMINE HYDROCHLORIDE
     Route: 065
  2. THIOLA [Concomitant]
     Active Substance: TIOPRONIN
     Route: 065
     Dates: start: 20170116, end: 20170129
  3. POTASSIUM CITRATE. [Suspect]
     Active Substance: POTASSIUM CITRATE
     Indication: CYSTINURIA
     Route: 065

REACTIONS (2)
  - Rash erythematous [Recovered/Resolved]
  - Rash pruritic [Unknown]
